FAERS Safety Report 6945616-3 (Version None)
Quarter: 2010Q3

REPORT INFORMATION
  Report Type: 
  Country: None (occurrence: None)
  Receive Date: 20100819
  Receipt Date: 20100805
  Transmission Date: 20110219
  Serious: Yes (Other)
  Sender: FDA-Public Use
  Company Number: 009124

PATIENT
  Age: 15 Year
  Sex: Female

DRUGS (7)
  1. LACOSAMIDE [Suspect]
     Indication: CONVULSION
     Dosage: INTRAVENOUS (NOT OTHERWISE SPECIFIED)
     Route: 042
  2. LEVETIRACETAM [Suspect]
     Indication: CONVULSION
  3. FOSPHENYTOIN [Suspect]
     Indication: CONVULSION
     Dosage: INTRAVENOUS (NOT OTHERWISE SPECIFIED)
     Route: 042
  4. TOPIRAMATE [Suspect]
     Indication: CONVULSION
  5. OXCARBAZEPINE [Suspect]
     Indication: CONVULSION
  6. PENTOBARBITAL CAP [Suspect]
     Indication: CONVULSION
     Dosage: INTRAVENOUS (NOT OTHERWISE SPECIFIED)
     Route: 042
  7. PHENOBARBITAL TAB [Suspect]
     Indication: CONVULSION
     Dosage: INTRAVENOUS (NOT OTHERWISE SPECIFIED)
     Route: 042

REACTIONS (3)
  - HYPONATRAEMIA [None]
  - NO THERAPEUTIC RESPONSE [None]
  - PANCREATITIS ACUTE [None]
